FAERS Safety Report 8858712 (Version 1)
Quarter: 2012Q4

REPORT INFORMATION
  Report Type: 
  Country: US (occurrence: US)
  Receive Date: 20121024
  Receipt Date: 20121024
  Transmission Date: 20130627
  Serious: No
  Sender: FDA-Public Use
  Company Number: US-B.I. PHARMACEUTICALS,INC./RIDGEFIELD-2012-BP-25652BP

PATIENT
  Sex: Female

DRUGS (4)
  1. SPIRIVA [Suspect]
     Indication: CHRONIC OBSTRUCTIVE PULMONARY DISEASE
     Dosage: 18 mcg
     Route: 055
     Dates: start: 2011, end: 2012
  2. SYMBICORT [Concomitant]
     Indication: CHRONIC OBSTRUCTIVE PULMONARY DISEASE
     Route: 055
     Dates: start: 2011
  3. ALBUTEROL [Concomitant]
     Indication: CHRONIC OBSTRUCTIVE PULMONARY DISEASE
     Route: 055
     Dates: start: 2011
  4. CLARITIN [Concomitant]
     Indication: NASAL CONGESTION
     Route: 048

REACTIONS (3)
  - Pulmonary congestion [Not Recovered/Not Resolved]
  - Drug effect delayed [Not Recovered/Not Resolved]
  - Cough [Not Recovered/Not Resolved]
